FAERS Safety Report 6826519-1 (Version None)
Quarter: 2010Q3

REPORT INFORMATION
  Report Type: 
  Country: None (occurrence: None)
  Receive Date: 20100709
  Receipt Date: 20100627
  Transmission Date: 20110219
  Serious: Yes (Hospitalization)
  Sender: FDA-Public Use
  Company Number: PHHY2010IL42694

PATIENT
  Age: 63 Year
  Sex: Male

DRUGS (4)
  1. TASIGNA [Suspect]
     Indication: CHRONIC MYELOID LEUKAEMIA
     Dosage: 800 MG
     Route: 048
  2. RAMIPRIL [Concomitant]
  3. DISOTHIAZIDE [Concomitant]
  4. LEVOTHYROXINE SODIUM [Concomitant]

REACTIONS (5)
  - HYPERMAGNESAEMIA [None]
  - HYPOGLYCAEMIA [None]
  - HYPOKALAEMIA [None]
  - NAUSEA [None]
  - VOMITING [None]
